FAERS Safety Report 15629535 (Version 1)
Quarter: 2018Q4

REPORT INFORMATION
  Report Type: Spontaneous
  Country: US (occurrence: US)
  Receive Date: 20181117
  Receipt Date: 20181117
  Transmission Date: 20190205
  Serious: No
  Sender: FDA-Public Use
  Company Number: US-CELLTRION INC.-2018US023165

PATIENT

DRUGS (4)
  1. INFLECTRA [Suspect]
     Active Substance: INFLIXIMAB-DYYB
     Dosage: 300 UNK
     Route: 042
     Dates: start: 20180706, end: 20180706
  2. IMURAN [Concomitant]
     Active Substance: AZATHIOPRINE
     Indication: CROHN^S DISEASE
     Dosage: 100 MG, DAILY
     Route: 048
  3. INFLECTRA [Suspect]
     Active Substance: INFLIXIMAB-DYYB
     Indication: CROHN^S DISEASE
     Dosage: 300 MG
     Route: 042
  4. INFLECTRA [Suspect]
     Active Substance: INFLIXIMAB-DYYB
     Dosage: UNK
     Route: 065
     Dates: start: 201708, end: 201708

REACTIONS (4)
  - Drug ineffective [Unknown]
  - Inappropriate schedule of product administration [Unknown]
  - Weight decreased [Unknown]
  - Malaise [Unknown]
